FAERS Safety Report 4636703-3 (Version None)
Quarter: 2005Q2

REPORT INFORMATION
  Report Type: 
  Country: None (occurrence: None)
  Receive Date: 20050414
  Receipt Date: 20050331
  Transmission Date: 20051028
  Serious: Yes (Hospitalization, Other)
  Sender: FDA-Public Use
  Company Number: 2005053734

PATIENT
  Age: 65 Year
  Sex: Female

DRUGS (4)
  1. TOLTERODINE TARTRATE [Suspect]
     Indication: BLADDER DISORDER
     Dosage: 4 MG ( 2 MG, 2 IN 1 D), ORAL
     Route: 048
     Dates: start: 20040101
  2. METHOTREXATE [Suspect]
     Indication: BREAST CANCER
     Dosage: (50 MG, 1 IN 7 D), INTRAVENOUS
     Route: 042
     Dates: start: 20050310, end: 20050318
  3. FLUOROURACIL [Suspect]
     Indication: BREAST CANCER
     Dosage: (900 MG, 1 IN 7 D), INTRAVENOUS
     Route: 042
     Dates: start: 20050310, end: 20050318
  4. CYCLOPHOSPHAMIDE (CYCLOPHSPHAMIDE) [Suspect]
     Indication: BREAST CANCER
     Dosage: 150 MG (150 MG, 1 IN 1D), ORAL
     Route: 048
     Dates: start: 20050310, end: 20050323

REACTIONS (5)
  - BREAST CANCER [None]
  - DIARRHOEA [None]
  - DRUG INTERACTION [None]
  - HAEMATOTOXICITY [None]
  - MUCOSAL INFLAMMATION [None]
